FAERS Safety Report 23760092 (Version 2)
Quarter: 2024Q2

REPORT INFORMATION
  Report Type: Spontaneous
  Country: CN (occurrence: CN)
  Receive Date: 20240419
  Receipt Date: 20240521
  Transmission Date: 20240715
  Serious: Yes (Hospitalization)
  Sender: FDA-Public Use
  Company Number: CN-NOVOPROD-1203841

PATIENT
  Age: 88 Year
  Sex: Female
  Weight: 46 kg

DRUGS (3)
  1. INSULIN ASPART [Suspect]
     Active Substance: INSULIN ASPART
     Dosage: 20 IU, QD (9 U IN THE MORNING, 6 U AT NOON AND 5 U IN THE EVENING)
     Dates: start: 202404
  2. INSULIN ASPART [Suspect]
     Active Substance: INSULIN ASPART
     Indication: Type 2 diabetes mellitus
     Dosage: 20 IU, QD (9 U IN THE MORNING, 6 U AT NOON AND 5 U IN THE EVENING)
     Dates: start: 2018, end: 2023
  3. NOVOLIN R [Suspect]
     Active Substance: INSULIN HUMAN
     Indication: Type 2 diabetes mellitus
     Dosage: UNK
     Dates: start: 2023, end: 202404

REACTIONS (2)
  - Cerebral infarction [Not Recovered/Not Resolved]
  - Blood glucose increased [Unknown]

NARRATIVE: CASE EVENT DATE: 20240401
